FAERS Safety Report 11869501 (Version 2)
Quarter: 2016Q1

REPORT INFORMATION
  Report Type: Spontaneous
  Country: US (occurrence: US)
  Receive Date: 20151227
  Receipt Date: 20160329
  Transmission Date: 20160526
  Serious: No
  Sender: FDA-Public Use
  Company Number: US-ASTRAZENECA-2015SF27975

PATIENT
  Sex: Male
  Weight: 74.8 kg

DRUGS (2)
  1. SYMBICORT [Suspect]
     Active Substance: BUDESONIDE\FORMOTEROL FUMARATE DIHYDRATE
     Indication: CHRONIC OBSTRUCTIVE PULMONARY DISEASE
     Dosage: 160/4.5 MCG, 2 PUFFS,TWO TIMES A DAY
     Route: 055
     Dates: start: 2009
  2. SYMBICORT [Suspect]
     Active Substance: BUDESONIDE\FORMOTEROL FUMARATE DIHYDRATE
     Indication: DYSPNOEA EXERTIONAL
     Dosage: 160/4.5 MCG, 2 PUFFS,TWO TIMES A DAY
     Route: 055
     Dates: start: 2009

REACTIONS (4)
  - Underdose [Unknown]
  - Device malfunction [Unknown]
  - Device failure [Unknown]
  - Dyspnoea [Unknown]
